FAERS Safety Report 9105013 (Version 1)
Quarter: 2013Q1

REPORT INFORMATION
  Report Type: Spontaneous
  Country: ES (occurrence: ES)
  Receive Date: 20130220
  Receipt Date: 20130220
  Transmission Date: 20140127
  Serious: Yes (Other)
  Sender: FDA-Public Use
  Company Number: ES-PFIZER INC-2013063070

PATIENT
  Age: 79 Year
  Sex: Male

DRUGS (1)
  1. EPANUTIN [Suspect]
     Dosage: UNK
     Route: 048
     Dates: start: 20120428, end: 20120430

REACTIONS (3)
  - Medication error [Recovered/Resolved]
  - Somnolence [Recovered/Resolved]
  - Disorientation [Recovered/Resolved]
